FAERS Safety Report 10449003 (Version 2)
Quarter: 2014Q3

REPORT INFORMATION
  Report Type: Spontaneous
  Country: US (occurrence: US)
  Receive Date: 20140912
  Receipt Date: 20140912
  Transmission Date: 20150326
  Serious: Yes (Other)
  Sender: FDA-Public Use
  Company Number: US-CIPLA LTD.-2014US00214

PATIENT

DRUGS (12)
  1. ASCORBIC ACID. [Concomitant]
     Active Substance: ASCORBIC ACID
     Dosage: 250 MG, BID
  2. MEMANTINE [Concomitant]
     Active Substance: MEMANTINE
     Dosage: 5 MG, DAILY,DURING THE FIRST TWO WEEKS OF THERAPY (WEEKS 4 AND 5OF HOSPITALIZATION)
  3. DONEPEZIL [Suspect]
     Active Substance: DONEPEZIL
     Indication: PSYCHOTIC DISORDER
     Dosage: 5 MG,DAILY
  4. AMLODIPINE [Concomitant]
     Active Substance: AMLODIPINE BESYLATE
     Dosage: 5 MG, QD
  5. LEVOTHYROXINE [Concomitant]
     Active Substance: LEVOTHYROXINE
     Dosage: 50 MCG, DAILY
  6. DONEPEZIL [Suspect]
     Active Substance: DONEPEZIL
     Dosage: 10 MG, UNK
  7. RISPERIDONE. [Concomitant]
     Active Substance: RISPERIDONE
     Dosage: 0.25 MG, DAILY
  8. SPIRONOLACTONE. [Concomitant]
     Active Substance: SPIRONOLACTONE
     Dosage: 25 MG DAILY
  9. QUETIAPINE [Concomitant]
     Active Substance: QUETIAPINE
     Indication: PSYCHOTIC DISORDER
     Dosage: 500 MG, AT BEDTIME
  10. FERROUS SULFATE [Concomitant]
     Active Substance: FERROUS SULFATE\FERROUS SULFATE, DRIED
     Dosage: 325 MG TWICE DAILY
  11. HYDROCHLOROTHIAZIDE. [Concomitant]
     Active Substance: HYDROCHLOROTHIAZIDE
     Dosage: 25 MG DAILY
  12. VALPROIC ACID. [Concomitant]
     Active Substance: VALPROIC ACID
     Dosage: 250 MG TWICE DAILY

REACTIONS (1)
  - Mania [Recovered/Resolved]
